FAERS Safety Report 4365085-X (Version None)
Quarter: 2004Q2

REPORT INFORMATION
  Report Type: 
  Country: None (occurrence: None)
  Receive Date: 20040521
  Receipt Date: 20040507
  Transmission Date: 20050107
  Serious: Yes (Hospitalization)
  Sender: FDA-Public Use
  Company Number: D01200401627

PATIENT
  Age: 62 Year
  Sex: 0
  Weight: 59 kg

DRUGS (2)
  1. CISPLATIN [Suspect]
     Indication: SMALL CELL LUNG CANCER EXTENSIVE STAGE
     Dosage: 80 MG/M2 CONT - INTRAVENOUS NOS
     Route: 042
     Dates: start: 20040414, end: 20040414
  2. ETOPOSIDE [Suspect]
     Indication: SMALL CELL LUNG CANCER EXTENSIVE STAGE
     Dosage: 120 MG/M2 GIVEN ON DAYS 1, 2, 3 IN A 30-MINUTE INFUSION - INTRAVENOUS NOE
     Route: 042
     Dates: start: 20040414, end: 20040416

REACTIONS (3)
  - CARDIAC FAILURE [None]
  - COUGH [None]
  - TACHYCARDIA [None]
